FAERS Safety Report 5104280-9 (Version None)
Quarter: 2006Q3

REPORT INFORMATION
  Report Type: 
  Country: None (occurrence: None)
  Receive Date: 20060912
  Receipt Date: 20060912
  Transmission Date: 20061208
  Serious: Yes (Hospitalization)
  Sender: FDA-Public Use
  Company Number: None

PATIENT
  Sex: Male

DRUGS (19)
  1. FONDAPARINUX 2.5 MG [Suspect]
     Indication: THROMBOSIS PROPHYLAXIS
     Dosage: 2.5 MG DAILY SQ
     Route: 058
     Dates: start: 20060112, end: 20060206
  2. ACETAMINOPHEN AND HYDROCODONE BITARTRATE [Concomitant]
  3. ALBUTEROL [Concomitant]
  4. DIPHENHYDRAMINE HCL [Concomitant]
  5. DOCUSATE [Concomitant]
  6. DOXEPIN [Concomitant]
  7. FLUNISOLIDE ORAL INHALANT [Concomitant]
  8. FORADIL [Concomitant]
  9. FUROSEMIDE [Concomitant]
  10. HYDROCORTISONE ORAL [Concomitant]
  11. INSULIN [Concomitant]
  12. IPRAPTROPIUM [Concomitant]
  13. LISINOPRIL [Concomitant]
  14. LORATADINE [Concomitant]
  15. METOPROLOL [Concomitant]
  16. MORPHINE [Concomitant]
  17. OMEPRAZOLE [Concomitant]
  18. POTASSIUM CHLORIDE [Concomitant]
  19. SIMVASTATIN [Concomitant]

REACTIONS (2)
  - HAEMATOCRIT DECREASED [None]
  - HAEMOGLOBIN DECREASED [None]
